FAERS Safety Report 7314225-9 (Version None)
Quarter: 2011Q1

REPORT INFORMATION
  Report Type: 
  Country: None (occurrence: None)
  Receive Date: 20110225
  Receipt Date: 20100712
  Transmission Date: 20110831
  Serious: No
  Sender: FDA-Public Use
  Company Number: US-MYLANLABS-2010S1010514

PATIENT
  Age: 22 Year
  Sex: Female
  Weight: 77.11 kg

DRUGS (6)
  1. CLARAVIS [Suspect]
  2. AMNESTEEM [Suspect]
     Indication: ACNE CYSTIC
     Dates: end: 20100601
  3. ZYRTEC [Concomitant]
  4. OCELLA [Concomitant]
  5. ASA [Concomitant]
  6. CLARAVIS [Suspect]
     Indication: ACNE CYSTIC
     Dates: start: 20091102

REACTIONS (2)
  - BLOOD TRIGLYCERIDES INCREASED [None]
  - LIPIDS INCREASED [None]
